FAERS Safety Report 6683404-6 (Version None)
Quarter: 2010Q2

REPORT INFORMATION
  Report Type: 
  Country: None (occurrence: None)
  Receive Date: 20100415
  Receipt Date: 20100407
  Transmission Date: 20101027
  Serious: Yes (Other)
  Sender: FDA-Public Use
  Company Number: DE-ABBOTT-10P-062-0633842-00

PATIENT
  Sex: Male

DRUGS (7)
  1. HUMIRA [Suspect]
     Indication: CROHN'S DISEASE
     Route: 058
     Dates: start: 20090508, end: 20090826
  2. HUMIRA [Suspect]
     Indication: COLITIS
     Route: 058
     Dates: start: 20090826, end: 20091015
  3. HUMIRA [Suspect]
     Route: 058
     Dates: start: 20091015, end: 20100305
  4. HUMIRA [Suspect]
     Route: 058
     Dates: start: 20100305
  5. DECORTIN [Concomitant]
     Indication: CROHN'S DISEASE
  6. PENTASA [Concomitant]
     Indication: DRUG USE FOR UNKNOWN INDICATION
  7. COLIFOAM [Concomitant]
     Indication: DRUG USE FOR UNKNOWN INDICATION

REACTIONS (1)
  - TINNITUS [None]
